FAERS Safety Report 14444546 (Version 2)
Quarter: 2018Q1

REPORT INFORMATION
  Report Type: Spontaneous
  Country: DE (occurrence: DE)
  Receive Date: 20180126
  Receipt Date: 20180223
  Transmission Date: 20180509
  Serious: Yes (Life-Threatening, Hospitalization)
  Sender: FDA-Public Use
  Company Number: DE-ROCHE-2060011

PATIENT
  Age: 26 Year
  Sex: Male
  Weight: 74 kg

DRUGS (13)
  1. RITUXIMAB. [Suspect]
     Active Substance: RITUXIMAB
     Indication: EPSTEIN-BARR VIRUS ASSOCIATED LYMPHOMA
     Dosage: DAILY DOSE: 500 MG MILLIGRAM(S) EVERY MONTH
     Route: 042
     Dates: start: 20130101, end: 20140101
  2. RITUXIMAB. [Suspect]
     Active Substance: RITUXIMAB
     Indication: DISEASE RECURRENCE
     Route: 042
     Dates: start: 20130101, end: 20140101
  3. DEXAMETHASON [Suspect]
     Active Substance: DEXAMETHASONE
     Indication: PRODUCT USED FOR UNKNOWN INDICATION
     Route: 048
  4. METHYLPREDNISOLONE. [Suspect]
     Active Substance: METHYLPREDNISOLONE
     Indication: IMMUNOSUPPRESSION
     Dosage: DAILY DOSE: 4 MG MILLIGRAM(S) EVERY DAY
     Route: 065
     Dates: end: 20130101
  5. RITUXIMAB. [Suspect]
     Active Substance: RITUXIMAB
     Indication: EPSTEIN-BARR VIRUS ASSOCIATED LYMPHOMA
     Route: 042
  6. METHOTREXATE. [Suspect]
     Active Substance: METHOTREXATE
     Indication: EPSTEIN-BARR VIRUS ASSOCIATED LYMPHOMA
     Dosage: DOSE:4 GRAM(S)/SQUARE METER
     Route: 042
  7. RITUXIMAB. [Suspect]
     Active Substance: RITUXIMAB
     Indication: DISEASE RECURRENCE
     Dosage: DAILY DOSE: 500 MG MILLIGRAM(S) EVERY MONTH
     Route: 042
     Dates: start: 20130101, end: 20130101
  8. RITUXIMAB. [Suspect]
     Active Substance: RITUXIMAB
     Indication: DISEASE RECURRENCE
     Route: 042
  9. RITUXIMAB. [Suspect]
     Active Substance: RITUXIMAB
     Indication: EPSTEIN-BARR VIRUS ASSOCIATED LYMPHOMA
     Route: 042
     Dates: start: 20130101, end: 20140101
  10. MYCOPHENOLATE SODIUM [Suspect]
     Active Substance: MYCOPHENOLATE SODIUM
     Indication: IMMUNOSUPPRESSION
     Dosage: DAILY DOSE: 1440 MG MILLIGRAM(S) EVERY DAY
     Route: 065
     Dates: end: 20130101
  11. MYCOPHENOLATE SODIUM [Suspect]
     Active Substance: MYCOPHENOLATE SODIUM
     Indication: IMMUNOSUPPRESSION
     Dosage: DAILY DOSE: 720 MG MILLIGRAM(S) EVERY DAY
     Route: 065
     Dates: start: 20130101
  12. CYTARABINE. [Suspect]
     Active Substance: CYTARABINE
     Indication: EPSTEIN-BARR VIRUS ASSOCIATED LYMPHOMA
     Dosage: DOSE:3 GRAM(S)/SQUARE METER
     Route: 065
  13. LEUCOVORIN. [Suspect]
     Active Substance: LEUCOVORIN
     Indication: EPSTEIN-BARR VIRUS ASSOCIATED LYMPHOMA
     Route: 042

REACTIONS (11)
  - Epstein-Barr virus associated lymphoma [Not Recovered/Not Resolved]
  - Brain oedema [Not Recovered/Not Resolved]
  - Cytomegalovirus infection [Recovered/Resolved]
  - Pneumonia escherichia [Recovered/Resolved]
  - Vision blurred [Not Recovered/Not Resolved]
  - Sepsis [Recovered/Resolved]
  - Renal transplant failure [Unknown]
  - Leukopenia [Unknown]
  - Headache [Not Recovered/Not Resolved]
  - Central nervous system lesion [Not Recovered/Not Resolved]
  - Pneumocystis jirovecii pneumonia [Unknown]

NARRATIVE: CASE EVENT DATE: 20130101
